FAERS Safety Report 24845800 (Version 1)
Quarter: 2025Q1

REPORT INFORMATION
  Report Type: Spontaneous
  Country: CN (occurrence: CN)
  Receive Date: 20250115
  Receipt Date: 20250115
  Transmission Date: 20250409
  Serious: Yes (Hospitalization)
  Sender: EISAI
  Company Number: CN-Eisai-EC-2025-181984

PATIENT
  Age: 39 Year
  Sex: Male
  Weight: 77 kg

DRUGS (1)
  1. LENVATINIB [Suspect]
     Active Substance: LENVATINIB
     Indication: Hepatic cancer
     Route: 048
     Dates: start: 20241207

REACTIONS (1)
  - Prothrombin time abnormal [Unknown]

NARRATIVE: CASE EVENT DATE: 20250103
